FAERS Safety Report 9706640 (Version 1)
Quarter: 2013Q4

REPORT INFORMATION
  Report Type: Spontaneous
  Country: US (occurrence: US)
  Receive Date: 20131125
  Receipt Date: 20131125
  Transmission Date: 20140711
  Serious: Yes (Other)
  Sender: FDA-Public Use
  Company Number: US-JNJFOC-20131110101

PATIENT
  Age: 53 Year
  Sex: Female
  Weight: 83.01 kg

DRUGS (5)
  1. XARELTO [Suspect]
     Indication: CEREBROVASCULAR ACCIDENT PROPHYLAXIS
     Route: 048
     Dates: start: 20121114
  2. XARELTO [Suspect]
     Indication: ATRIAL FIBRILLATION
     Route: 048
     Dates: start: 20121114
  3. RYTHMOL [Concomitant]
     Indication: ATRIAL FIBRILLATION
     Route: 065
     Dates: start: 200409
  4. FLOVENT [Concomitant]
     Indication: ASTHMA
     Dosage: ONE PUFF ONCE DAILY
     Route: 065
  5. CLOTRIMAZOLE, BETAMETHASONE DIPROPIONATE [Concomitant]
     Indication: TINEA PEDIS
     Dosage: LITTLE BIT AS NEEDED
     Route: 061
     Dates: start: 2013

REACTIONS (3)
  - Arrhythmia [Unknown]
  - Drug prescribing error [Unknown]
  - Inappropriate schedule of drug administration [Unknown]
